FAERS Safety Report 11950047 (Version 3)
Quarter: 2016Q1

REPORT INFORMATION
  Report Type: Spontaneous
  Country: US (occurrence: US)
  Receive Date: 20160126
  Receipt Date: 20160304
  Transmission Date: 20160526
  Serious: Yes (Other)
  Sender: FDA-Public Use
  Company Number: US-LUNDBECK-DKLU2007747

PATIENT
  Sex: Female

DRUGS (1)
  1. NORTHERA [Suspect]
     Active Substance: DROXIDOPA
     Indication: PRODUCT USED FOR UNKNOWN INDICATION
     Route: 065

REACTIONS (18)
  - Asthenia [Unknown]
  - Speech disorder [Unknown]
  - Chest pain [Unknown]
  - Presyncope [Unknown]
  - Loss of consciousness [Unknown]
  - Dyspnoea [Unknown]
  - Cold sweat [Unknown]
  - Cardiac flutter [Unknown]
  - Pulmonary pain [Unknown]
  - Headache [Unknown]
  - Palpitations [Unknown]
  - Acne [Unknown]
  - Menstruation irregular [Unknown]
  - Heart rate increased [Unknown]
  - Chest discomfort [Unknown]
  - Tremor [Unknown]
  - Back pain [Unknown]
  - Dizziness [Unknown]
